FAERS Safety Report 22656066 (Version 1)
Quarter: 2023Q2

REPORT INFORMATION
  Report Type: Report from Study
  Country: CA (occurrence: CA)
  Receive Date: 20230629
  Receipt Date: 20230629
  Transmission Date: 20230722
  Serious: Yes (Other)
  Sender: FDA-Public Use
  Company Number: CA-BAUSCH-BL-2023-001017

PATIENT
  Age: 66 Year
  Sex: Male

DRUGS (6)
  1. CONTRAVE [Suspect]
     Active Substance: BUPROPION HYDROCHLORIDE\NALTREXONE HYDROCHLORIDE
     Indication: Weight control
     Dosage: 90/8 MG, 1 TAB/DAY (FIRST ATTEMPT)
     Route: 048
     Dates: start: 2022
  2. CONTRAVE [Suspect]
     Active Substance: BUPROPION HYDROCHLORIDE\NALTREXONE HYDROCHLORIDE
     Dosage: 90/8 MG, 1 TAB IN MORNING (SECOND ATTEMPT)
     Route: 048
     Dates: start: 20230108, end: 20230114
  3. CONTRAVE [Suspect]
     Active Substance: BUPROPION HYDROCHLORIDE\NALTREXONE HYDROCHLORIDE
     Dosage: 90/8 MG, 1 TAB IN MORNING/1 TAB IN EVENING (SECOND ATTEMPT)
     Route: 048
     Dates: start: 20230115
  4. CONTRAVE [Suspect]
     Active Substance: BUPROPION HYDROCHLORIDE\NALTREXONE HYDROCHLORIDE
     Dosage: 90/8 MG, 2 TABS IN MORNING/2 TABS IN EVENING
     Route: 048
     Dates: start: 2023, end: 20230508
  5. CONTRAVE [Suspect]
     Active Substance: BUPROPION HYDROCHLORIDE\NALTREXONE HYDROCHLORIDE
     Dosage: 90/8 MG, 2 TABS IN MORNING/2 TABS IN EVENING
     Route: 048
     Dates: start: 20230515
  6. MORPHINE [Suspect]
     Active Substance: MORPHINE
     Indication: Renal pain
     Dosage: UNK (ROUTE: INTRAVENOUS (NOT OTHERWISE SPECIFIED))
     Route: 042
     Dates: start: 202304

REACTIONS (9)
  - Nephrolithiasis [Recovered/Resolved]
  - Heart rate decreased [Recovered/Resolved]
  - Blood pressure decreased [Recovered/Resolved]
  - Dizziness postural [Unknown]
  - Therapy interrupted [Unknown]
  - Drug dose titration not performed [Unknown]
  - Contraindicated product prescribed [Unknown]
  - Contraindicated product administered [Unknown]
  - Intentional product use issue [Unknown]

NARRATIVE: CASE EVENT DATE: 20221222
